FAERS Safety Report 4751832-1 (Version None)
Quarter: 2005Q3

REPORT INFORMATION
  Report Type: 
  Country: None (occurrence: None)
  Receive Date: 20050822
  Receipt Date: 20050722
  Transmission Date: 20060218
  Serious: No
  Sender: FDA-Public Use
  Company Number: PHEH2005US08025

PATIENT
  Age: 80 Year
  Sex: Female

DRUGS (2)
  1. ZELNORM [Suspect]
     Indication: IRRITABLE BOWEL SYNDROME
     Dosage: PRN, ORAL
     Route: 048
     Dates: start: 20040101, end: 20050701
  2. NORVASC [Suspect]
     Indication: HYPERTENSION
     Dosage: 1 TABLET, ORAL
     Route: 048

REACTIONS (3)
  - BLINDNESS TRANSIENT [None]
  - HYPERTENSION [None]
  - OCULAR HYPERAEMIA [None]
